FAERS Safety Report 17955170 (Version 1)
Quarter: 2020Q2

REPORT INFORMATION
  Report Type: Spontaneous
  Country: US (occurrence: US)
  Receive Date: 20200626
  Receipt Date: 20200626
  Transmission Date: 20200714
  Serious: No
  Sender: FDA-Public Use
  Company Number: None

PATIENT
  Sex: Female

DRUGS (1)
  1. VIGABATRIN 500MG POWDER PACKETS 50/CT [Suspect]
     Active Substance: VIGABATRIN
     Indication: INFANTILE SPASMS
     Route: 048
     Dates: start: 20200604, end: 20200619

REACTIONS (2)
  - Tonic convulsion [None]
  - Condition aggravated [None]

NARRATIVE: CASE EVENT DATE: 20190619
